FAERS Safety Report 14109391 (Version 1)
Quarter: 2017Q4

REPORT INFORMATION
  Report Type: Spontaneous
  Country: US (occurrence: US)
  Receive Date: 20171019
  Receipt Date: 20171019
  Transmission Date: 20180321
  Serious: Yes (Hospitalization)
  Sender: FDA-Public Use
  Company Number: US-ASTRAZENECA-2017SF05164

PATIENT
  Age: 31934 Day
  Sex: Male
  Weight: 108.9 kg

DRUGS (11)
  1. ESOMEPRAZOLE [Suspect]
     Active Substance: ESOMEPRAZOLE
     Indication: HYPERCHLORHYDRIA
     Route: 048
     Dates: start: 2007
  2. AMITIZA [Concomitant]
     Active Substance: LUBIPROSTONE
  3. MURALAX [Concomitant]
  4. METOPROLOL TARTRATE. [Suspect]
     Active Substance: METOPROLOL TARTRATE
     Indication: HYPERTENSION
     Route: 048
     Dates: start: 2015
  5. MOVANTIK [Suspect]
     Active Substance: NALOXEGOL OXALATE
     Indication: OBSTRUCTION
     Route: 048
     Dates: start: 20171011
  6. ROSUVASTATIN. [Suspect]
     Active Substance: ROSUVASTATIN
     Indication: BLOOD CHOLESTEROL ABNORMAL
     Route: 048
     Dates: start: 2014
  7. METOPROLOL TARTRATE. [Suspect]
     Active Substance: METOPROLOL TARTRATE
     Indication: ATRIAL FIBRILLATION
     Route: 048
     Dates: start: 2015
  8. LINZESS [Concomitant]
     Active Substance: LINACLOTIDE
  9. ZANTAC [Concomitant]
     Active Substance: RANITIDINE HYDROCHLORIDE
  10. TAMSULOSIN HYDROCHLORIDE. [Concomitant]
     Active Substance: TAMSULOSIN HYDROCHLORIDE
     Indication: BENIGN PROSTATIC HYPERPLASIA
     Route: 048
     Dates: start: 2013
  11. COLACE [Concomitant]
     Active Substance: DOCUSATE SODIUM

REACTIONS (12)
  - Blood cholesterol increased [Unknown]
  - Body height decreased [Unknown]
  - Abdominal tenderness [Recovered/Resolved]
  - X-ray abnormal [Unknown]
  - Atrial fibrillation [Unknown]
  - Hyperchlorhydria [Unknown]
  - Pneumonia [Unknown]
  - Muscle spasms [Recovered/Resolved]
  - Amnesia [Unknown]
  - Hypertension [Unknown]
  - Benign prostatic hyperplasia [Unknown]
  - Intentional product misuse [Unknown]

NARRATIVE: CASE EVENT DATE: 20171012
